FAERS Safety Report 19756513 (Version 2)
Quarter: 2021Q4

REPORT INFORMATION
  Report Type: Report from Study
  Country: US (occurrence: US)
  Receive Date: 20210827
  Receipt Date: 20211112
  Transmission Date: 20220303
  Serious: Yes (Hospitalization)
  Sender: FDA-Public Use
  Company Number: US-JNJFOC-20210837345

PATIENT
  Age: 59 Year
  Sex: Female
  Weight: 120.31 kg

DRUGS (3)
  1. SPRAVATO [Suspect]
     Active Substance: ESKETAMINE
     Indication: Depression
     Dosage: 56 MG, 1 TOTAL DOSE
     Dates: start: 20210416, end: 20210416
  2. SPRAVATO [Suspect]
     Active Substance: ESKETAMINE
     Dates: start: 20210419
  3. BUSPAR [Concomitant]
     Active Substance: BUSPIRONE HYDROCHLORIDE

REACTIONS (2)
  - Gastric disorder [Unknown]
  - Blood pressure increased [Unknown]
